FAERS Safety Report 26019705 (Version 1)
Quarter: 2025Q4

REPORT INFORMATION
  Report Type: Spontaneous
  Country: US (occurrence: None)
  Receive Date: 20251108
  Receipt Date: 20251108
  Transmission Date: 20260118
  Serious: Yes (Hospitalization)
  Sender: FDA-CTU
  Company Number: None

PATIENT
  Age: 15 Year
  Sex: Female
  Weight: 51.75 kg

DRUGS (3)
  1. HIZENTRA [Suspect]
     Active Substance: HUMAN IMMUNOGLOBULIN G
     Indication: Hypogammaglobulinaemia
     Dosage: OTHER QUANTITY : 1 INJECTION(S);?OTHER FREQUENCY : WEEKLY;?
     Route: 058
     Dates: start: 20250601, end: 20251019
  2. ENVARSUS XR [Concomitant]
     Active Substance: TACROLIMUS
  3. bactrim (both used consistently for past ~10 years) [Concomitant]

REACTIONS (7)
  - Influenza [None]
  - Sepsis [None]
  - Nasopharyngitis [None]
  - Meningitis aseptic [None]
  - Manufacturing materials issue [None]
  - Physical product label issue [None]
  - Therapy cessation [None]

NARRATIVE: CASE EVENT DATE: 20251026
